FAERS Safety Report 8792874 (Version 3)
Quarter: 2012Q4

REPORT INFORMATION
  Report Type: 
  Country: US (occurrence: US)
  Receive Date: 20120918
  Receipt Date: 20121107
  Transmission Date: 20130627
  Serious: Yes (Hospitalization, Other)
  Sender: FDA-Public Use
  Company Number: US-PFIZER INC-2012227411

PATIENT
  Age: 47 Year
  Sex: Male

DRUGS (2)
  1. CHANTIX [Suspect]
     Indication: SMOKING CESSATION THERAPY
     Dosage: 1 mg, 2x/day
     Route: 048
     Dates: start: 20090326, end: 20090508
  2. PRILOSEC OTC [Concomitant]
     Indication: HEARTBURN
     Dosage: 20 mg, 1x/day
     Dates: start: 200903

REACTIONS (5)
  - Loss of consciousness [Recovered/Resolved]
  - Road traffic accident [Not Recovered/Not Resolved]
  - Coma [Recovered/Resolved]
  - Multiple fractures [Unknown]
  - Gait disturbance [Not Recovered/Not Resolved]
